FAERS Safety Report 20983024 (Version 2)
Quarter: 2022Q3

REPORT INFORMATION
  Report Type: Spontaneous
  Country: US (occurrence: US)
  Receive Date: 20220620
  Receipt Date: 20220721
  Transmission Date: 20221027
  Serious: Yes (Hospitalization, Other)
  Sender: FDA-Public Use
  Company Number: US-CELGENE-USA-20210504890

PATIENT
  Age: 20 Year
  Sex: Male
  Weight: 89.8 kg

DRUGS (12)
  1. AZACITIDINE [Suspect]
     Active Substance: AZACITIDINE
     Indication: Neoplasm malignant
     Dosage: FREQUENCY TEXT: NOT PROVIDED
     Route: 042
     Dates: start: 20201204, end: 20201209
  2. VENETOCLAX [Suspect]
     Active Substance: VENETOCLAX
     Indication: Neoplasm malignant
     Dosage: 100 MILLIGRAM
     Route: 048
     Dates: start: 20201201, end: 20201201
  3. VENETOCLAX [Suspect]
     Active Substance: VENETOCLAX
     Dosage: 200 MILLIGRAM
     Route: 048
     Dates: start: 20201202, end: 20201202
  4. VENETOCLAX [Suspect]
     Active Substance: VENETOCLAX
     Dosage: 400 MILLIGRAM
     Route: 048
     Dates: start: 20201203, end: 20210504
  5. DECITABINE [Suspect]
     Active Substance: DECITABINE
     Indication: Neoplasm malignant
     Dosage: 20 MILLIGRAM/SQ. METER
     Route: 042
     Dates: start: 20210112, end: 20210116
  6. DECITABINE [Suspect]
     Active Substance: DECITABINE
     Dosage: 20 MILLIGRAM/SQ. METER
     Route: 042
     Dates: start: 20210216, end: 20210218
  7. DECITABINE [Suspect]
     Active Substance: DECITABINE
     Dosage: 20 MILLIGRAM/SQ. METER
     Route: 042
     Dates: start: 20210323, end: 20210424
  8. FLUCONAZOLE [Concomitant]
     Active Substance: FLUCONAZOLE
     Indication: Pneumonia fungal
     Dosage: 400 MILLIGRAM
     Route: 048
     Dates: start: 20201125
  9. PENTAMIDINE [Concomitant]
     Active Substance: PENTAMIDINE
     Indication: Infection prophylaxis
     Dosage: .3333 MILLIGRAM
     Route: 042
     Dates: start: 20210304
  10. ACYCLOVIR [Concomitant]
     Active Substance: ACYCLOVIR
     Indication: Cytomegalovirus infection
     Dosage: 800 MILLIGRAM
     Route: 048
     Dates: start: 20210226
  11. MELATONIN [Concomitant]
     Active Substance: MELATONIN
     Indication: Insomnia
     Dosage: 6 MILLIGRAM
     Route: 048
     Dates: start: 20210319
  12. TYLENOL [Concomitant]
     Active Substance: ACETAMINOPHEN
     Indication: Pain
     Dosage: 2600 MILLIGRAM, 4 IN 1 DAY
     Route: 048
     Dates: start: 20210319

REACTIONS (4)
  - Soft tissue infection [Not Recovered/Not Resolved]
  - Bacteraemia [Recovered/Resolved]
  - Febrile neutropenia [Not Recovered/Not Resolved]
  - Malignant neoplasm progression [Unknown]

NARRATIVE: CASE EVENT DATE: 20210508
